FAERS Safety Report 4797344-0 (Version None)
Quarter: 2005Q4

REPORT INFORMATION
  Report Type: 
  Country: None (occurrence: None)
  Receive Date: 20051011
  Receipt Date: 20051011
  Transmission Date: 20060501
  Serious: Yes (Other)
  Sender: FDA-Public Use
  Company Number: None

PATIENT
  Sex: Male

DRUGS (2)
  1. CARBOPLATIN [Suspect]
     Indication: NON-SMALL CELL LUNG CANCER
     Dosage: AUC6 IV
     Route: 042
     Dates: start: 20001108, end: 20001129
  2. TAXOL [Suspect]
     Dosage: 200MG/M^2 IV
     Route: 042

REACTIONS (4)
  - ANGIOPATHY [None]
  - BLADDER CANCER [None]
  - FEBRILE NEUTROPENIA [None]
  - INTERMITTENT CLAUDICATION [None]
